FAERS Safety Report 4398306-8 (Version None)
Quarter: 2004Q3

REPORT INFORMATION
  Report Type: 
  Country: None (occurrence: None)
  Receive Date: 20040712
  Receipt Date: 20040628
  Transmission Date: 20050211
  Serious: Yes (Life-Threatening, Hospitalization, Other)
  Sender: FDA-Public Use
  Company Number: FI-JNJFOC-20040503457

PATIENT
  Age: 26 Year
  Sex: Female
  Weight: 50 kg

DRUGS (10)
  1. REMICADE [Suspect]
     Indication: RHEUMATOID ARTHRITIS
     Dosage: INTRAVENOUS
     Route: 042
     Dates: start: 20030605, end: 20030619
  2. PLACEBO (PLACEBO) [Suspect]
     Indication: RHEUMATOID ARTHRITIS
     Dates: start: 20030605, end: 20030619
  3. AZATHIOPRINE [Suspect]
     Indication: RHEUMATOID ARTHRITIS
     Dosage: 50 MG, 2 IN 1 DAY, ORAL
     Route: 048
     Dates: start: 20030921, end: 20040505
  4. SANDIMMUNE [Suspect]
     Indication: RHEUMATOID ARTHRITIS
     Dosage: 100 MG, 2 IN 1 DAY,. ORAL
     Route: 048
     Dates: start: 20030916, end: 20040505
  5. PREDNISOLONE [Concomitant]
  6. OXIKLORIN (HYDROXYCHLOROQUINE SULFATE) [Concomitant]
  7. CILEST (CILEST) [Concomitant]
  8. SERETIDE (SERETIDE) [Concomitant]
  9. DUACT (DUACT) [Concomitant]
  10. RHINOCORT (BUDESONIDE) INHALATION [Concomitant]

REACTIONS (3)
  - DRUG INTERACTION [None]
  - GASTROENTERITIS [None]
  - LOBAR PNEUMONIA [None]
